FAERS Safety Report 24706341 (Version 1)
Quarter: 2024Q4

REPORT INFORMATION
  Report Type: Other
  Country: US (occurrence: US)
  Receive Date: 20241206
  Receipt Date: 20241206
  Transmission Date: 20250114
  Serious: Yes (Hospitalization)
  Sender: B BRAUN
  Company Number: US-B.Braun Medical Inc.-2166611

PATIENT
  Age: 49 Year
  Sex: Male

DRUGS (5)
  1. MEROPENEM [Suspect]
     Active Substance: MEROPENEM
     Indication: Small intestinal obstruction
  2. AMPICILLIN SODIUM\SULBACTAM SODIUM [Suspect]
     Active Substance: AMPICILLIN SODIUM\SULBACTAM SODIUM
  3. BEDAQUILINE [Concomitant]
     Active Substance: BEDAQUILINE
  4. MOXIFLOXACIN [Concomitant]
     Active Substance: MOXIFLOXACIN
  5. LINEZOLID [Concomitant]
     Active Substance: LINEZOLID

REACTIONS (3)
  - Potassium wasting nephropathy [Unknown]
  - Off label use [Unknown]
  - Hypophosphataemia [Unknown]
